FAERS Safety Report 19158329 (Version 7)
Quarter: 2021Q3

REPORT INFORMATION
  Report Type: Spontaneous
  Country: US (occurrence: US)
  Receive Date: 20210420
  Receipt Date: 20210723
  Transmission Date: 20211014
  Serious: Yes (Other)
  Sender: FDA-Public Use
  Company Number: US-BEH-2021130850

PATIENT
  Age: 26 Year
  Sex: Female

DRUGS (5)
  1. BERINERT [Suspect]
     Active Substance: HUMAN C1-ESTERASE INHIBITOR
     Indication: HEREDITARY ANGIOEDEMA
     Dosage: 1700 INTERNATIONAL UNIT, QW
     Route: 042
     Dates: start: 202012
  2. BERINERT [Suspect]
     Active Substance: HUMAN C1-ESTERASE INHIBITOR
     Indication: PROPHYLAXIS
     Dosage: 1700 INTERNATIONAL UNIT, QW, PRN
     Route: 042
     Dates: start: 20201217
  3. BERINERT [Suspect]
     Active Substance: HUMAN C1-ESTERASE INHIBITOR
     Indication: HEREDITARY ANGIOEDEMA
     Dosage: 1700 INTERNATIONAL UNIT, QW
     Route: 042
     Dates: start: 202012
  4. BERINERT [Suspect]
     Active Substance: HUMAN C1-ESTERASE INHIBITOR
     Indication: PROPHYLAXIS
     Dosage: 1700 INTERNATIONAL UNIT, QW, PRN
     Route: 042
     Dates: start: 20201217
  5. CINRYZE [Concomitant]
     Active Substance: HUMAN C1-ESTERASE INHIBITOR
     Route: 065

REACTIONS (13)
  - Hereditary angioedema [Recovered/Resolved]
  - Abdominal distension [Recovered/Resolved]
  - Hereditary angioedema [Recovered/Resolved]
  - Endometriosis [Unknown]
  - No adverse event [Unknown]
  - Hereditary angioedema [Recovered/Resolved]
  - Hereditary angioedema [Unknown]
  - Off label use [Unknown]
  - Hereditary angioedema [Unknown]
  - Hereditary angioedema [Unknown]
  - Hereditary angioedema [Recovered/Resolved]
  - Surgery [Unknown]
  - Hereditary angioedema [Recovered/Resolved]

NARRATIVE: CASE EVENT DATE: 2021
